FAERS Safety Report 6676599-1 (Version None)
Quarter: 2010Q2

REPORT INFORMATION
  Report Type: 
  Country: None (occurrence: None)
  Receive Date: 20100412
  Receipt Date: 20100318
  Transmission Date: 20101027
  Serious: Yes (Other)
  Sender: FDA-Public Use
  Company Number: PHHY2010US13432

PATIENT
  Sex: Female

DRUGS (2)
  1. EXJADE [Suspect]
     Dosage: 1500 MG, QD
     Route: 048
  2. RESTASIS [Concomitant]

REACTIONS (7)
  - CONSTIPATION [None]
  - EYE BURNS [None]
  - EYE DISORDER [None]
  - INSOMNIA [None]
  - INTESTINAL FUNCTIONAL DISORDER [None]
  - SJOGREN'S SYNDROME [None]
  - VISION BLURRED [None]
